FAERS Safety Report 5791998-8 (Version None)
Quarter: 2008Q2

REPORT INFORMATION
  Report Type: 
  Country: None (occurrence: None)
  Receive Date: 20080625
  Receipt Date: 20080312
  Transmission Date: 20081010
  Serious: No
  Sender: FDA-Public Use
  Company Number: US-WYE-H03130008

PATIENT

DRUGS (1)
  1. TORISEL [Suspect]
     Dosage: INTRAVENOUS; 2 DOSES
     Route: 042

REACTIONS (1)
  - HYPERSENSITIVITY [None]
